FAERS Safety Report 23551865 (Version 1)
Quarter: 2024Q1

REPORT INFORMATION
  Report Type: Spontaneous
  Country: US (occurrence: US)
  Receive Date: 20240222
  Receipt Date: 20240222
  Transmission Date: 20240410
  Serious: Yes (Hospitalization)
  Sender: FDA-Public Use
  Company Number: US-STRIDES ARCOLAB LIMITED-2023SP003232

PATIENT
  Age: 23 Year
  Sex: Male

DRUGS (4)
  1. CISPLATIN [Suspect]
     Active Substance: CISPLATIN
     Indication: Germ cell cancer
     Dosage: UNK, CYCLICAL; ONE CYCLE
     Route: 065
  2. ETOPOSIDE [Suspect]
     Active Substance: ETOPOSIDE
     Indication: Germ cell cancer
     Dosage: UNK, CYCLICAL; ONE CYCLE
     Route: 065
  3. ETOPOSIDE [Suspect]
     Active Substance: ETOPOSIDE
     Dosage: UNK; VAC/IE REGIMEN
     Route: 065
  4. BLEOMYCIN [Suspect]
     Active Substance: BLEOMYCIN SULFATE
     Indication: Germ cell cancer
     Dosage: UNK, CYCLICAL; ONE CYCLE
     Route: 065

REACTIONS (1)
  - Drug ineffective for unapproved indication [Unknown]
